FAERS Safety Report 6928278-0 (Version None)
Quarter: 2010Q3

REPORT INFORMATION
  Report Type: 
  Country: None (occurrence: None)
  Receive Date: 20100817
  Receipt Date: 20100805
  Transmission Date: 20110219
  Serious: Yes (Hospitalization)
  Sender: FDA-Public Use
  Company Number: DE-ROCHE-720271

PATIENT
  Sex: Male
  Weight: 66 kg

DRUGS (9)
  1. BEVACIZUMAB [Suspect]
     Route: 065
  2. CEFUROXIME [Concomitant]
  3. MARCUMAR [Concomitant]
     Dosage: IF NEEDED DEPENDENT ON QUICK VALUE
  4. IRINOTECAN HCL [Concomitant]
     Route: 042
     Dates: start: 20090610
  5. FOLINIC ACID [Concomitant]
     Route: 042
     Dates: start: 20090610, end: 20090611
  6. FLUOROURACIL [Concomitant]
     Route: 042
     Dates: start: 20090610, end: 20090611
  7. ATROPIN [Concomitant]
     Route: 042
     Dates: start: 20090610
  8. DEXA [Concomitant]
     Route: 042
     Dates: start: 20100610
  9. KEVATRIL [Concomitant]
     Route: 042
     Dates: start: 20090610

REACTIONS (2)
  - DEEP VEIN THROMBOSIS [None]
  - SCROTAL ABSCESS [None]
